FAERS Safety Report 21420203 (Version 1)
Quarter: 2022Q4

REPORT INFORMATION
  Report Type: Spontaneous
  Country: US (occurrence: US)
  Receive Date: 20221007
  Receipt Date: 20221007
  Transmission Date: 20230112
  Serious: Yes (Hospitalization)
  Sender: FDA-Public Use
  Company Number: US-LUPIN PHARMACEUTICALS INC.-2022-11674

PATIENT
  Age: 19 Year
  Sex: Male

DRUGS (16)
  1. SULFAMETHOXAZOLE AND TRIMETHOPRIM [Suspect]
     Active Substance: SULFAMETHOXAZOLE\TRIMETHOPRIM
     Indication: Disseminated toxoplasmosis
     Dosage: UNK (TREATMENT WAS DISCONTINUED INITIALLY AND LATER RESTATED AND DOSE ADJUSTED)
     Route: 065
  2. SULFAMETHOXAZOLE AND TRIMETHOPRIM [Suspect]
     Active Substance: SULFAMETHOXAZOLE\TRIMETHOPRIM
     Indication: Evidence based treatment
  3. VANCOMYCIN [Suspect]
     Active Substance: VANCOMYCIN
     Indication: Evidence based treatment
     Dosage: UNK
     Route: 065
  4. VANCOMYCIN [Suspect]
     Active Substance: VANCOMYCIN
     Indication: Bacillus infection
  5. ANAKINRA [Concomitant]
     Active Substance: ANAKINRA
     Indication: Sepsis
     Dosage: UNK
     Route: 065
  6. HUMAN IMMUNOGLOBULIN G [Concomitant]
     Active Substance: HUMAN IMMUNOGLOBULIN G
     Indication: Multiple organ dysfunction syndrome
     Dosage: UNK
     Route: 065
  7. GENTAMICIN [Concomitant]
     Active Substance: GENTAMICIN
     Indication: Evidence based treatment
     Dosage: UNK
     Route: 065
  8. MEROPENEM [Concomitant]
     Active Substance: MEROPENEM
     Indication: Evidence based treatment
     Dosage: UNK
     Route: 065
     Dates: start: 202208
  9. MEROPENEM [Concomitant]
     Active Substance: MEROPENEM
     Indication: Bacillus infection
  10. AMPHOTERICIN B [Concomitant]
     Active Substance: AMPHOTERICIN B
     Indication: Evidence based treatment
     Dosage: UNK
     Route: 065
  11. CIDOFOVIR [Concomitant]
     Active Substance: CIDOFOVIR
     Indication: Evidence based treatment
     Dosage: UNK
     Route: 065
  12. IVERMECTIN [Concomitant]
     Active Substance: IVERMECTIN
     Indication: Evidence based treatment
     Dosage: UNK
     Route: 065
  13. CEFEPIME [Concomitant]
     Active Substance: CEFEPIME HYDROCHLORIDE
     Indication: Evidence based treatment
     Dosage: UNK
     Route: 065
  14. CEFEPIME [Concomitant]
     Active Substance: CEFEPIME HYDROCHLORIDE
     Indication: Bacillus infection
  15. METHYLPREDNISOLONE [Concomitant]
     Active Substance: METHYLPREDNISOLONE
     Indication: Evidence based treatment
     Dosage: UNK
     Route: 065
  16. ALBENDAZOLE [Concomitant]
     Active Substance: ALBENDAZOLE
     Indication: Evidence based treatment
     Dosage: UNK
     Route: 065

REACTIONS (5)
  - Drug ineffective for unapproved indication [Unknown]
  - Hyperferritinaemia [Unknown]
  - Hepatobiliary disease [Unknown]
  - Coagulopathy [Unknown]
  - Off label use [Unknown]
